FAERS Safety Report 6094675-1 (Version None)
Quarter: 2009Q1

REPORT INFORMATION
  Report Type: 
  Country: None (occurrence: None)
  Receive Date: 20090224
  Receipt Date: 20090209
  Transmission Date: 20090719
  Serious: Yes (Other)
  Sender: FDA-Public Use
  Company Number: JHP200900035

PATIENT
  Age: 51 Year

DRUGS (2)
  1. COLY-MYCIN M PARENTERAL (COLISTIN) INJECTION, 150MG [Suspect]
     Indication: BACTERAEMIA
     Dosage: 100 MG EVERY 6 HOURS (5.3 MG/KG/DAY), INTRAVENOUS; 75 MG EVERY 8 HOURS, INTRAVENOUS
     Route: 042
  2. ANTIBIOTICS () [Suspect]
     Indication: PSEUDOMONAS INFECTION

REACTIONS (3)
  - GASTROINTESTINAL DISORDER [None]
  - NEPHROPATHY TOXIC [None]
  - NEUROTOXICITY [None]
